FAERS Safety Report 8434354-6 (Version None)
Quarter: 2012Q2

REPORT INFORMATION
  Report Type: 
  Country: None (occurrence: None)
  Receive Date: 20120613
  Receipt Date: 20120612
  Transmission Date: 20120825
  Serious: Yes (Other)
  Sender: FDA-Public Use
  Company Number: ES-MERCK-1206ESP00017

PATIENT
  Age: 11 Year
  Sex: Male

DRUGS (2)
  1. SINGULAIR [Suspect]
     Indication: HYPERSENSITIVITY
     Route: 065
     Dates: start: 20111101, end: 20120301
  2. SINGULAIR [Suspect]
     Route: 065

REACTIONS (3)
  - SLEEP TERROR [None]
  - OVERDOSE [None]
  - IRRITABILITY [None]
